FAERS Safety Report 6772742-4 (Version None)
Quarter: 2010Q2

REPORT INFORMATION
  Report Type: 
  Country: None (occurrence: None)
  Receive Date: 20100616
  Receipt Date: 20100610
  Transmission Date: 20101027
  Serious: Yes (Other)
  Sender: FDA-Public Use
  Company Number: FR-WYE-G06253710

PATIENT
  Sex: Male

DRUGS (4)
  1. TAZOCILLINE [Suspect]
     Indication: INFECTION
     Route: 042
     Dates: start: 20100507
  2. ZOMETA [Suspect]
     Indication: METASTASES TO BONE
     Dosage: UNKNOWN
     Route: 042
     Dates: start: 20100504, end: 20100504
  3. GENTAMICIN SULFATE [Suspect]
     Indication: INFECTION
     Route: 042
     Dates: start: 20100507, end: 20100508
  4. DETICENE [Suspect]
     Indication: MALIGNANT MELANOMA
     Dosage: 467 MG AND THEN 37 MG
     Route: 042
     Dates: start: 20100503, end: 20100504

REACTIONS (2)
  - RENAL FAILURE ACUTE [None]
  - TUMOUR LYSIS SYNDROME [None]
